FAERS Safety Report 14794323 (Version 2)
Quarter: 2018Q3

REPORT INFORMATION
  Report Type: Spontaneous
  Country: DE (occurrence: DE)
  Receive Date: 20180423
  Receipt Date: 20180827
  Transmission Date: 20181010
  Serious: Yes (Hospitalization, Other)
  Sender: FDA-Public Use
  Company Number: DE-PFIZER INC-2018162173

PATIENT
  Age: 26 Year
  Sex: Female
  Weight: 100 kg

DRUGS (3)
  1. METHOTREXATE SODIUM. [Interacting]
     Active Substance: METHOTREXATE SODIUM
     Dosage: 3390 MG (HIGHEST DOSE), UNK
     Dates: start: 20180221, end: 20180222
  2. IBEROGAST [Interacting]
     Active Substance: HERBALS
     Indication: ABDOMINAL DISCOMFORT
     Dosage: INTAKE OVER 4?5 DAYS
     Dates: start: 20180216, end: 20180218
  3. METHOTREXATE SODIUM. [Suspect]
     Active Substance: METHOTREXATE SODIUM
     Indication: T-CELL TYPE ACUTE LEUKAEMIA
     Dosage: 3050 MG (HIGHEST DOSE), UNK
     Dates: start: 20180220

REACTIONS (3)
  - Drug interaction [Unknown]
  - Hepatotoxicity [Unknown]
  - Drug level increased [Unknown]

NARRATIVE: CASE EVENT DATE: 201802
